FAERS Safety Report 7069951-6 (Version None)
Quarter: 2010Q4

REPORT INFORMATION
  Report Type: 
  Country: None (occurrence: None)
  Receive Date: 20101028
  Receipt Date: 20100727
  Transmission Date: 20110411
  Serious: No
  Sender: FDA-Public Use
  Company Number: US-WYE-H16615210

PATIENT
  Age: 35 Year
  Sex: Female
  Weight: 66.28 kg

DRUGS (1)
  1. ADVIL [Suspect]
     Indication: HEADACHE
     Dosage: TWO TABLETS ONCE
     Route: 048
     Dates: start: 20100726, end: 20100726

REACTIONS (2)
  - CHEST DISCOMFORT [None]
  - DYSPEPSIA [None]
